FAERS Safety Report 4510476-7 (Version None)
Quarter: 2004Q4

REPORT INFORMATION
  Report Type: 
  Country: None (occurrence: None)
  Receive Date: 20041119
  Receipt Date: 20041109
  Transmission Date: 20050328
  Serious: Yes (Hospitalization)
  Sender: FDA-Public Use
  Company Number: FR-2004-032794

PATIENT
  Age: 27 Year
  Sex: Female
  Weight: 128 kg

DRUGS (2)
  1. MIRENA [Suspect]
     Indication: CONTRACEPTION
     Dosage: 20 UG/DAY, CONT, INTRA-UTERINE
     Route: 015
     Dates: start: 20031006, end: 20031014
  2. LEVOTHYROXINE SODIUM [Concomitant]

REACTIONS (2)
  - POST PROCEDURAL COMPLICATION [None]
  - PULMONARY EMBOLISM [None]
